FAERS Safety Report 4361232-4 (Version None)
Quarter: 2004Q2

REPORT INFORMATION
  Report Type: 
  Country: None (occurrence: None)
  Receive Date: 20040519
  Receipt Date: 20040505
  Transmission Date: 20050107
  Serious: Yes (Hospitalization)
  Sender: FDA-Public Use
  Company Number: 04P-056-0255069-00

PATIENT
  Age: 72 Year
  Sex: Female

DRUGS (10)
  1. FERO - GRAD TABLETS (FERO-GRADUMET FILMTAB) (FERROUS SULFATE) (FERROUS [Suspect]
     Indication: EAR, NOSE AND THROAT EXAMINATION ABNORMAL
     Dosage: PER ORAL
     Route: 048
     Dates: start: 20021212, end: 20030113
  2. FERO - GRAD TABLETS (FERO-GRADUMET FILMTAB) (FERROUS SULFATE) (FERROUS [Suspect]
     Indication: INFECTION
     Dosage: PER ORAL
     Route: 048
     Dates: start: 20021212, end: 20030113
  3. FORCAPIL [Suspect]
     Dates: start: 20021212, end: 20030113
  4. TERBINAFINE HCL [Suspect]
     Dates: start: 20021212, end: 20030113
  5. BETAMETHASONE [Concomitant]
  6. POLERY [Concomitant]
  7. CEFPODOXIME PROXETIL [Concomitant]
  8. PSEUDOEPHEDRINE HCL [Concomitant]
  9. DERINOX [Concomitant]
  10. TIXOCORTOL PIVALATE [Concomitant]

REACTIONS (5)
  - CUTANEOUS VASCULITIS [None]
  - PERIANAL ERYTHEMA [None]
  - RENAL FAILURE [None]
  - STEVENS-JOHNSON SYNDROME [None]
  - SYSTEMIC INFLAMMATORY RESPONSE SYNDROME [None]
